FAERS Safety Report 7438367-2 (Version None)
Quarter: 2011Q2

REPORT INFORMATION
  Report Type: 
  Country: None (occurrence: None)
  Receive Date: 20110426
  Receipt Date: 20110404
  Transmission Date: 20111010
  Serious: Yes (Hospitalization, Other)
  Sender: FDA-Public Use
  Company Number: US-BAYER-201040838NA

PATIENT
  Age: 31 Year
  Sex: Female
  Weight: 84.354 kg

DRUGS (4)
  1. YASMIN [Suspect]
     Indication: ORAL CONTRACEPTION
  2. YAZ [Suspect]
     Indication: ACNE
     Dosage: UNK
  3. YASMIN [Suspect]
     Indication: ACNE
     Dosage: UNK
  4. YAZ [Suspect]
     Indication: ORAL CONTRACEPTION

REACTIONS (3)
  - MUSCULOSKELETAL DISCOMFORT [None]
  - CHEST PAIN [None]
  - PULMONARY EMBOLISM [None]
